FAERS Safety Report 4556359-8 (Version None)
Quarter: 2005Q1

REPORT INFORMATION
  Report Type: 
  Country: None (occurrence: None)
  Receive Date: 20050103
  Receipt Date: 20040812
  Transmission Date: 20050727
  Serious: Yes (Other)
  Sender: FDA-Public Use
  Company Number: 2004UW17204

PATIENT
  Age: 70 Year
  Sex: Female
  Weight: 56.6996 kg

DRUGS (6)
  1. CRESTOR [Suspect]
     Indication: SCAN ABNORMAL
     Dosage: 5 MG PO
     Route: 048
  2. CELEBREX [Concomitant]
  3. FLEXERIL [Concomitant]
  4. EMORRIL [Concomitant]
  5. METHOTREXATE [Concomitant]
  6. THYROID TAB [Concomitant]

REACTIONS (1)
  - ALOPECIA [None]
